FAERS Safety Report 9437670 (Version 2)
Quarter: 2013Q3

REPORT INFORMATION
  Report Type: Report from Study
  Country: US (occurrence: US)
  Receive Date: 20130802
  Receipt Date: 20130816
  Transmission Date: 20140515
  Serious: Yes (Death)
  Sender: FDA-Public Use
  Company Number: GXBR2013US001457

PATIENT
  Age: 87 Year
  Sex: Female
  Weight: 51.8 kg

DRUGS (20)
  1. NAFCILLIN FOR INJECTION, USP [Suspect]
     Indication: STAPHYLOCOCCAL BACTERAEMIA
     Dosage: 2 G, Q4H
     Route: 042
     Dates: start: 20130630, end: 20130703
  2. CEFTAROLINE FOSAMIL [Suspect]
     Indication: STAPHYLOCOCCAL BACTERAEMIA
     Dosage: 300 MG, Q8H
     Route: 042
     Dates: start: 20130626, end: 20130628
  3. CEFTAROLINE FOSAMIL [Suspect]
     Dosage: 400 MG, Q8H
     Route: 042
     Dates: start: 20130628, end: 20130630
  4. VANCOMYCIN HYDROCHLORIDE [Suspect]
     Indication: STAPHYLOCOCCAL BACTERAEMIA
     Dosage: 1 G, ONCE/SINGLE
     Route: 042
     Dates: start: 20130625, end: 20130625
  5. VANCOMYCIN HYDROCHLORIDE [Suspect]
     Dosage: 1 G, ONCE/SINGLE
     Route: 042
     Dates: start: 20130703, end: 20130703
  6. PREDNISONE [Suspect]
     Indication: PAIN
     Dosage: 20 MG, QD
     Route: 048
     Dates: start: 20130624, end: 20130703
  7. ASPIRIN (E.C.) [Suspect]
     Indication: CARDIOVASCULAR EVENT PROPHYLAXIS
     Dosage: 81 MG, QD
     Route: 048
     Dates: start: 2011, end: 20130703
  8. HEPARIN [Suspect]
     Indication: THROMBOSIS PROPHYLAXIS
     Dosage: 15000 U, Q8H
     Route: 058
     Dates: start: 20130623, end: 20130703
  9. CARDIZEM - SLOW RELEASE ^PHARMACIA + UPJOHN^ [Concomitant]
     Indication: HYPERTENSION
     Dosage: UNK MG, UNK
  10. COLACE [Concomitant]
     Indication: CONSTIPATION
     Dosage: 100 MG, BID
     Route: 048
     Dates: start: 20130625, end: 20130704
  11. SYNTHROID [Concomitant]
     Indication: HYPOTHYROIDISM
     Dosage: 25 UG, QD
     Route: 048
     Dates: start: 2011, end: 20130703
  12. LIDOCAINE [Concomitant]
     Indication: PAIN
     Dosage: 1 DF, QD
     Route: 062
     Dates: start: 20130629, end: 20130703
  13. PRILOSEC [Concomitant]
     Indication: GASTROOESOPHAGEAL REFLUX DISEASE
     Dosage: 20 MG, QD
     Route: 048
     Dates: start: 2011, end: 20130703
  14. EXELON [Concomitant]
     Indication: DEMENTIA
     Dosage: 9.5 MG, QD
     Route: 062
     Dates: start: 2010, end: 20130703
  15. EXELON [Concomitant]
     Dosage: 4.6 MG, QD
     Route: 062
     Dates: start: 20130624, end: 20130630
  16. TYLENOL [Concomitant]
     Indication: PAIN
     Dosage: 650 MG, Q4H PRN
     Route: 048
     Dates: start: 20130623, end: 20130703
  17. ALBUTEROL [Concomitant]
     Indication: WHEEZING
     Dosage: 2.5 MG, Q6H PRN
     Dates: start: 20130628, end: 20130628
  18. ATIVAN [Concomitant]
     Indication: AGITATION
     Dosage: 2 MG, ONCE/SINGLE
     Route: 042
     Dates: start: 20130629, end: 20130629
  19. XANAX [Concomitant]
     Indication: AGITATION
     Dosage: 0.25 MG, ONCE/SINGLE
     Route: 048
     Dates: start: 20130628, end: 20130628
  20. LASIX [Concomitant]
     Dosage: 20 MG, ONCE/SINGLE
     Route: 042
     Dates: start: 20130629, end: 20130629

REACTIONS (7)
  - Lower gastrointestinal haemorrhage [Fatal]
  - Treatment failure [None]
  - Condition aggravated [None]
  - Renal failure acute [None]
  - Spinal compression fracture [None]
  - Spinal epidural haematoma [None]
  - Malnutrition [None]
